FAERS Safety Report 5988250-4 (Version None)
Quarter: 2008Q4

REPORT INFORMATION
  Report Type: 
  Country: None (occurrence: None)
  Receive Date: 20081204
  Receipt Date: 20081120
  Transmission Date: 20090506
  Serious: Yes (Hospitalization, Other)
  Sender: FDA-Public Use
  Company Number: KV200800589

PATIENT
  Age: 66 Year
  Sex: Female
  Weight: 74.8 kg

DRUGS (11)
  1. ISOSORBIDE MONONITRATE [Suspect]
     Indication: ATRIAL FIBRILLATION
     Dosage: 60 MG, BID, ORAL
     Route: 048
  2. LASIX [Concomitant]
  3. METOPROLOL TARTRATE [Concomitant]
  4. LISINOPRIL [Concomitant]
  5. SIMVASTATIN [Concomitant]
  6. ZOLOFT [Concomitant]
  7. PREDNISONE [Concomitant]
  8. DIGOXIN [Concomitant]
  9. ZETIA [Concomitant]
  10. ALIPAZIDE [Concomitant]
  11. SPIROLACTONE [Concomitant]

REACTIONS (5)
  - ATRIAL FIBRILLATION [None]
  - CONDITION AGGRAVATED [None]
  - EJECTION FRACTION DECREASED [None]
  - HEART RATE INCREASED [None]
  - PRODUCT QUALITY ISSUE [None]
